FAERS Safety Report 18387961 (Version 5)
Quarter: 2020Q4

REPORT INFORMATION
  Report Type: Report from Study
  Country: US (occurrence: US)
  Receive Date: 20201015
  Receipt Date: 20201201
  Transmission Date: 20210114
  Serious: No
  Sender: FDA-Public Use
  Company Number: NVSC2020US275776

PATIENT
  Age: 64 Year
  Sex: Male

DRUGS (1)
  1. ENTRESTO [Suspect]
     Active Substance: SACUBITRIL\VALSARTAN
     Indication: CARDIOMYOPATHY
     Route: 048
     Dates: start: 20200912

REACTIONS (5)
  - Blood potassium abnormal [Recovering/Resolving]
  - Dyspnoea [Unknown]
  - Product use in unapproved indication [Unknown]
  - Hypoglycaemia [Unknown]
  - Hypotension [Unknown]

NARRATIVE: CASE EVENT DATE: 20200912
